FAERS Safety Report 25842699 (Version 1)
Quarter: 2025Q3

REPORT INFORMATION
  Report Type: Spontaneous
  Country: BR (occurrence: BR)
  Receive Date: 20250924
  Receipt Date: 20250924
  Transmission Date: 20251021
  Serious: Yes (Other)
  Sender: NOVO NORDISK
  Company Number: BR-NOVOPROD-1523910

PATIENT
  Age: 60 Year
  Sex: Female
  Weight: 67.6 kg

DRUGS (7)
  1. WEGOVY [Suspect]
     Active Substance: SEMAGLUTIDE
     Indication: Product used for unknown indication
  2. WEGOVY [Suspect]
     Active Substance: SEMAGLUTIDE
  3. WEGOVY [Suspect]
     Active Substance: SEMAGLUTIDE
  4. WEGOVY [Suspect]
     Active Substance: SEMAGLUTIDE
  5. WEGOVY [Suspect]
     Active Substance: SEMAGLUTIDE
  6. WEGOVY [Suspect]
     Active Substance: SEMAGLUTIDE
  7. ROSUVASTATIN [Concomitant]
     Active Substance: ROSUVASTATIN

REACTIONS (2)
  - Cholecystectomy [Unknown]
  - Adverse event [Unknown]
